FAERS Safety Report 25634962 (Version 3)
Quarter: 2025Q3

REPORT INFORMATION
  Report Type: Spontaneous
  Country: US (occurrence: US)
  Receive Date: 20250801
  Receipt Date: 20250907
  Transmission Date: 20251020
  Serious: Yes (Death, Hospitalization, Other)
  Sender: ARDELYX
  Company Number: US-ARDELYX-2025ARDX005723

PATIENT
  Sex: Female

DRUGS (3)
  1. XPHOZAH [Suspect]
     Active Substance: TENAPANOR HYDROCHLORIDE
     Indication: Chronic kidney disease
     Route: 048
     Dates: end: 20250721
  2. VITAMIN D [Concomitant]
     Active Substance: VITAMIN D NOS
     Indication: Product used for unknown indication
     Route: 065
  3. IRON [Concomitant]
     Active Substance: IRON
     Indication: Product used for unknown indication
     Route: 065

REACTIONS (3)
  - Cardiac death [Fatal]
  - Ventricular tachycardia [Not Recovered/Not Resolved]
  - Treatment noncompliance [Unknown]

NARRATIVE: CASE EVENT DATE: 20250101
